FAERS Safety Report 12368751 (Version 2)
Quarter: 2017Q1

REPORT INFORMATION
  Report Type: Spontaneous
  Country: US (occurrence: US)
  Receive Date: 20160513
  Receipt Date: 20170104
  Transmission Date: 20170428
  Serious: No
  Sender: FDA-Public Use
  Company Number: US-ALEXION-A201603433

PATIENT
  Age: 17 Month
  Sex: Female
  Weight: 8.5 kg

DRUGS (1)
  1. STRENSIQ [Suspect]
     Active Substance: ASFOTASE ALFA
     Indication: HYPOPHOSPHATASIA
     Dosage: 2 MG/KG, TIW
     Route: 058
     Dates: start: 201602

REACTIONS (3)
  - Injection site rash [Unknown]
  - Injection site mass [Unknown]
  - Viral infection [Unknown]
